FAERS Safety Report 15656850 (Version 2)
Quarter: 2018Q4

REPORT INFORMATION
  Report Type: Report from Study
  Country: US (occurrence: US)
  Receive Date: 20181126
  Receipt Date: 20181207
  Transmission Date: 20190205
  Serious: Yes (Hospitalization, Other)
  Sender: FDA-Public Use
  Company Number: US-BRISTOL-MYERS SQUIBB COMPANY-BMS-2018-109695

PATIENT
  Age: 62 Year
  Sex: Male
  Weight: 72 kg

DRUGS (2)
  1. CABIRALIZUMAB [Suspect]
     Active Substance: CABIRALIZUMAB
     Indication: PANCREATIC CARCINOMA
     Dosage: 4 MG/KG, Q2WK
     Route: 042
     Dates: start: 20181102
  2. NIVOLUMAB [Suspect]
     Active Substance: NIVOLUMAB
     Indication: PANCREATIC CARCINOMA
     Dosage: 240 MG, Q2WK
     Route: 042
     Dates: start: 20181102

REACTIONS (3)
  - Cerebrovascular accident [Unknown]
  - Metastases to liver [Unknown]
  - Bile duct obstruction [Unknown]

NARRATIVE: CASE EVENT DATE: 20181106
